FAERS Safety Report 18069905 (Version 2)
Quarter: 2020Q3

REPORT INFORMATION
  Report Type: Spontaneous
  Country: US (occurrence: US)
  Receive Date: 20200727
  Receipt Date: 20200727
  Transmission Date: 20201103
  Serious: Yes (Hospitalization)
  Sender: FDA-Public Use
  Company Number: US-JNJFOC-20200728113

PATIENT
  Age: 2 Decade

DRUGS (1)
  1. BENADRYL [Suspect]
     Active Substance: DIPHENHYDRAMINE HYDROCHLORIDE
     Indication: EUPHORIC MOOD
     Route: 065

REACTIONS (3)
  - Hallucination [Unknown]
  - Intentional overdose [Unknown]
  - Intentional product misuse [Unknown]
